FAERS Safety Report 13299804 (Version 2)
Quarter: 2017Q2

REPORT INFORMATION
  Report Type: Spontaneous
  Country: DE (occurrence: DE)
  Receive Date: 20170306
  Receipt Date: 20170420
  Transmission Date: 20170830
  Serious: Yes (Disabling)
  Sender: FDA-Public Use
  Company Number: GXKR2017DE001439

PATIENT
  Age: 40 Year
  Sex: Female
  Weight: 60 kg

DRUGS (2)
  1. MOMETAHEXAL [Suspect]
     Active Substance: MOMETASONE
     Indication: NASOPHARYNGITIS
     Dosage: 2X 1 PUFF
     Route: 045
     Dates: start: 20170103, end: 20170104
  2. MOMETAHEXAL [Suspect]
     Active Substance: MOMETASONE
     Indication: RHINITIS

REACTIONS (3)
  - Eye swelling [Recovered/Resolved]
  - Visual impairment [Recovered/Resolved]
  - Swelling face [Recovered/Resolved]

NARRATIVE: CASE EVENT DATE: 20170105
